FAERS Safety Report 11189267 (Version 1)
Quarter: 2015Q2

REPORT INFORMATION
  Report Type: Spontaneous
  Country: JP (occurrence: JP)
  Receive Date: 20150615
  Receipt Date: 20150615
  Transmission Date: 20150821
  Serious: Yes (Life-Threatening, Hospitalization)
  Sender: FDA-Public Use
  Company Number: JP-TEVA-570128ISR

PATIENT
  Age: 46 Year
  Sex: Female
  Weight: 32 kg

DRUGS (7)
  1. PROPYLTHIOURACIL. [Concomitant]
     Active Substance: PROPYLTHIOURACIL
     Indication: THYROTOXIC CRISIS
     Dosage: 800 MILLIGRAM DAILY; 800 MG/DAY
     Route: 065
  2. POTASSIUM IODIDE [Concomitant]
     Active Substance: POTASSIUM IODIDE
     Indication: THYROTOXIC CRISIS
     Dosage: 200 MILLIGRAM DAILY; 200 MG/DAY
     Route: 065
  3. HYDROCORTISONE. [Suspect]
     Active Substance: HYDROCORTISONE
     Indication: THYROTOXIC CRISIS
     Dosage: 400 MILLIGRAM DAILY; 400MG/DAY FOR 8 DAYS, FOLLOWED BY 300 MG/DAY FOR 3 DAYS
     Route: 042
  4. GABEXATE [Concomitant]
     Active Substance: GABEXATE
     Indication: DISSEMINATED INTRAVASCULAR COAGULATION
     Route: 065
  5. THIAMAZOLE [Concomitant]
     Active Substance: METHIMAZOLE
     Indication: BASEDOW^S DISEASE
     Dosage: 15 MILLIGRAM DAILY;
     Route: 048
  6. HYDROCORTISONE. [Suspect]
     Active Substance: HYDROCORTISONE
     Dosage: 300 MILLIGRAM DAILY; 300 MG/DAY FOR 3 DAYS
     Route: 042
  7. INSULIN [Concomitant]
     Active Substance: INSULIN NOS
     Indication: HYPERGLYCAEMIA
     Route: 065

REACTIONS (1)
  - Quadriplegia [Recovered/Resolved]
